FAERS Safety Report 5128831-3 (Version None)
Quarter: 2006Q4

REPORT INFORMATION
  Report Type: 
  Country: None (occurrence: None)
  Receive Date: 20061017
  Receipt Date: 20061006
  Transmission Date: 20070319
  Serious: Yes (Hospitalization)
  Sender: FDA-Public Use
  Company Number: DE-JNJFOC-20051103410

PATIENT
  Age: 42 Year
  Sex: Male
  Weight: 98 kg

DRUGS (4)
  1. REMICADE [Suspect]
     Dosage: 5MG/KG
     Route: 042
  2. REMICADE [Suspect]
     Indication: CROHN'S DISEASE
     Dosage: 5MG/KG
     Route: 042
  3. PREDNISONE TAB [Concomitant]
     Route: 065
  4. PREDNISONE TAB [Concomitant]
     Indication: CROHN'S DISEASE
     Route: 065

REACTIONS (2)
  - ENCEPHALITIS [None]
  - LISTERIA SEPSIS [None]
